FAERS Safety Report 6253559-6 (Version None)
Quarter: 2009Q3

REPORT INFORMATION
  Report Type: 
  Country: None (occurrence: None)
  Receive Date: 20090701
  Receipt Date: 20090619
  Transmission Date: 20100115
  Serious: No
  Sender: FDA-Public Use
  Company Number: DE-ELI_LILLY_AND_COMPANY-DE200906004849

PATIENT
  Age: 60 Year
  Sex: Female

DRUGS (1)
  1. ZYPREXA [Suspect]
     Indication: SCHIZOPHRENIA
     Dosage: 20 MG, DAILY (1/D)
     Route: 048

REACTIONS (1)
  - LYMPHOCYTE COUNT DECREASED [None]
